FAERS Safety Report 8910705 (Version 3)
Quarter: 2013Q1

REPORT INFORMATION
  Report Type: Spontaneous
  Country: HU (occurrence: None)
  Receive Date: 20121107
  Receipt Date: 20130117
  Transmission Date: 20140127
  Serious: Yes (Life-Threatening, Hospitalization)
  Sender: FDA-Public Use
  Company Number: 2012-1193

PATIENT
  Age: 74 Year
  Sex: Female
  Weight: 58 kg

DRUGS (4)
  1. CARFILZOMIB [Suspect]
     Indication: PLASMA CELL MYELOMA
     Dosage: (30 MG, DAYS 1, 2 )
     Route: 042
     Dates: start: 20120215, end: 20120216
  2. LENALIDOMIDE (LENALIDOMIDE) (CAPSULE) (LENALIDOMIDE) [Suspect]
     Indication: PLASMA CELL MYELOMA
     Dosage: (25 MG,DAYS 1-21, EVERY 28 DAYS)
     Route: 048
     Dates: start: 20120215, end: 20121016
  3. DEXAMETHASONE [Suspect]
     Indication: PLASMA CELL MYELOMA
     Dosage: (40 MG, 1,8, 15, 22, EVERY 28 DAYS)
     Dates: start: 20120215, end: 20120320
  4. IMOVANE (ZOPICLONE- (ZOPICLONE) [Concomitant]

REACTIONS (5)
  - Nausea [None]
  - Mobility decreased [None]
  - Pain in extremity [None]
  - Pulmonary embolism [None]
  - Fatigue [None]
